FAERS Safety Report 7756851-9 (Version None)
Quarter: 2011Q3

REPORT INFORMATION
  Report Type: 
  Country: None (occurrence: None)
  Receive Date: 20110916
  Receipt Date: 20110907
  Transmission Date: 20111222
  Serious: Yes (Hospitalization)
  Sender: FDA-Public Use
  Company Number: ES-JNJFOC-20110703398

PATIENT
  Sex: Female
  Weight: 84 kg

DRUGS (10)
  1. ACETAMINOPHEN [Concomitant]
     Indication: ILL-DEFINED DISORDER
     Route: 048
     Dates: start: 20070830, end: 20110510
  2. GOLIMUMAB [Suspect]
     Route: 058
     Dates: start: 20110328
  3. PREDNISONE [Concomitant]
     Indication: ILL-DEFINED DISORDER
     Route: 048
     Dates: start: 20100623
  4. NITROFURANTOINE [Concomitant]
     Route: 048
     Dates: start: 20090622, end: 20090807
  5. OMEPRAZOLE [Concomitant]
     Indication: ILL-DEFINED DISORDER
     Route: 048
     Dates: start: 20020508
  6. GOLIMUMAB [Suspect]
     Indication: PSORIATIC ARTHROPATHY
     Route: 058
     Dates: start: 20061110
  7. GOLIMUMAB [Suspect]
     Route: 058
     Dates: start: 20090622
  8. PREDNISONE [Concomitant]
     Route: 048
     Dates: start: 20080915, end: 20100622
  9. ALPRAZOLAM [Concomitant]
     Indication: ILL-DEFINED DISORDER
     Route: 048
     Dates: start: 20090330
  10. NITROFURANTOINE [Concomitant]
     Indication: ILL-DEFINED DISORDER
     Route: 048
     Dates: start: 20090526, end: 20090604

REACTIONS (2)
  - RENAL FAILURE [None]
  - URINARY TRACT INFECTION [None]
